FAERS Safety Report 13150189 (Version 2)
Quarter: 2017Q1

REPORT INFORMATION
  Report Type: Spontaneous
  Country: IT (occurrence: IT)
  Receive Date: 20170125
  Receipt Date: 20170202
  Transmission Date: 20170428
  Serious: Yes (Disabling)
  Sender: FDA-Public Use
  Company Number: IT-MYLANLABS-2017M1004124

PATIENT

DRUGS (2)
  1. VALSARTAN. [Concomitant]
     Active Substance: VALSARTAN
     Indication: BLOOD PRESSURE MANAGEMENT
     Route: 048
  2. TICLOPIDINA MYLAN GENERICS 250 MG COMPRESSE RIVESTITE [Suspect]
     Active Substance: TICLOPIDINE
     Indication: PROPHYLAXIS
     Dosage: 250 MG, UNK
     Route: 048
     Dates: start: 20161221

REACTIONS (3)
  - Abdominal pain [Not Recovered/Not Resolved]
  - Alopecia areata [Not Recovered/Not Resolved]
  - Thyroid mass [Not Recovered/Not Resolved]
